FAERS Safety Report 5591020-2 (Version None)
Quarter: 2008Q1

REPORT INFORMATION
  Report Type: 
  Country: None (occurrence: None)
  Receive Date: 20080115
  Receipt Date: 20080107
  Transmission Date: 20080703
  Serious: Yes (Hospitalization, Other)
  Sender: FDA-Public Use
  Company Number: PHRM2008FR00461

PATIENT
  Age: 29 Year
  Sex: Male

DRUGS (10)
  1. DEPAMIDE [Suspect]
     Dosage: 600 MG, TID
     Route: 048
     Dates: end: 20071024
  2. ANDROCUR [Suspect]
     Dosage: 100 MG, BID
     Route: 048
     Dates: start: 20050101, end: 20071024
  3. RIVOTRIL [Suspect]
     Indication: EPILEPSY
     Dosage: 4 MG, QD
     Route: 048
     Dates: start: 20050101, end: 20071024
  4. TAMSULOSIN HCL [Concomitant]
     Dosage: 0.4 MG PER DAY
     Dates: end: 20071029
  5. SEGLOR [Concomitant]
     Dosage: 5 MG, BID
     Dates: end: 20071029
  6. MESTINON [Concomitant]
     Dosage: 60 MG, QID
     Dates: end: 20071029
  7. LEPONEX [Suspect]
     Indication: AGGRESSION
     Dosage: 50 MG DAILY
     Route: 048
     Dates: start: 20040806
  8. LEPONEX [Suspect]
     Dosage: PROGRESSIVE INCREASE UNTIL 400 MG DAILY
     Dates: start: 20050101, end: 20070301
  9. LEPONEX [Suspect]
     Dosage: 150 MG DAILY
     Route: 048
     Dates: start: 20070423, end: 20070522
  10. LEPONEX [Suspect]
     Dosage: 100 MG DAILY
     Route: 048
     Dates: start: 20070523, end: 20071008

REACTIONS (6)
  - ALANINE AMINOTRANSFERASE INCREASED [None]
  - ASPARTATE AMINOTRANSFERASE INCREASED [None]
  - CELLULITIS [None]
  - CYTOLYTIC HEPATITIS [None]
  - HAEMATOLOGY TEST ABNORMAL [None]
  - TOOTH INFECTION [None]
